FAERS Safety Report 8727223 (Version 2)
Quarter: 2015Q3

REPORT INFORMATION
  Report Type: Report from Study
  Country: US (occurrence: US)
  Receive Date: 20120816
  Receipt Date: 20150911
  Transmission Date: 20151125
  Serious: Yes (Death)
  Sender: FDA-Public Use
  Company Number: US-ROCHE-1101477

PATIENT
  Sex: Male

DRUGS (13)
  1. ALBUTEROL. [Concomitant]
     Active Substance: ALBUTEROL
  2. TOBRAMYCIN. [Concomitant]
     Active Substance: TOBRAMYCIN
     Route: 065
  3. ATROPINE. [Concomitant]
     Active Substance: ATROPINE
  4. NORCURON [Concomitant]
     Active Substance: VECURONIUM BROMIDE
     Route: 065
  5. ACTIVASE [Suspect]
     Active Substance: ALTEPLASE
     Route: 065
  6. SOLU-MEDROL [Concomitant]
     Active Substance: METHYLPREDNISOLONE SODIUM SUCCINATE
  7. ZINACEF [Concomitant]
     Active Substance: CEFUROXIME SODIUM
  8. AMINOPHILLINE [Concomitant]
     Active Substance: AMINOPHYLLINE
  9. EPINEPHRINE. [Concomitant]
     Active Substance: EPINEPHRINE
     Route: 042
  10. VALIUM [Concomitant]
     Active Substance: DIAZEPAM
     Route: 042
  11. DOPAMINE [Concomitant]
     Active Substance: DOPAMINE\DOPAMINE HYDROCHLORIDE
     Route: 065
  12. ACTIVASE [Suspect]
     Active Substance: ALTEPLASE
     Indication: BRAIN INJURY
     Route: 065
  13. ERYTHROMYCIN. [Concomitant]
     Active Substance: ERYTHROMYCIN

REACTIONS (1)
  - Death [Fatal]
